FAERS Safety Report 8556694-2 (Version None)
Quarter: 2012Q3

REPORT INFORMATION
  Report Type: 
  Country: None (occurrence: None)
  Receive Date: 20120801
  Receipt Date: 20120718
  Transmission Date: 20120928
  Serious: Yes (Death, Hospitalization, Other)
  Sender: FDA-Public Use
  Company Number: CN-ASTELLAS-2012US006266

PATIENT
  Sex: Male

DRUGS (1)
  1. TARCEVA [Suspect]
     Indication: LUNG CARCINOMA CELL TYPE UNSPECIFIED STAGE IV
     Dosage: 150 MG, UID/QD
     Route: 048
     Dates: start: 20110318, end: 20110401

REACTIONS (21)
  - HYPOKALAEMIA [None]
  - CONFUSIONAL STATE [None]
  - RASH [None]
  - VOMITING [None]
  - NAUSEA [None]
  - TONGUE DISORDER [None]
  - CHOLELITHIASIS [None]
  - RENAL CYST [None]
  - DYSPNOEA [None]
  - RIGHT ATRIAL DILATATION [None]
  - CHEST DISCOMFORT [None]
  - LUNG INFECTION [None]
  - POOR QUALITY SLEEP [None]
  - PULSE ABNORMAL [None]
  - NEOPLASM MALIGNANT [None]
  - CONSTIPATION [None]
  - ASTHENIA [None]
  - ABDOMINAL PAIN [None]
  - ABDOMINAL PAIN UPPER [None]
  - DECREASED APPETITE [None]
  - ABDOMINAL DISCOMFORT [None]
